FAERS Safety Report 8859641 (Version 2)
Quarter: 2013Q1

REPORT INFORMATION
  Report Type: Spontaneous
  Country: GB (occurrence: GB)
  Receive Date: 20121025
  Receipt Date: 20130207
  Transmission Date: 20140127
  Serious: Yes (Death, Hospitalization)
  Sender: FDA-Public Use
  Company Number: GB-ROCHE-1147733

PATIENT
  Age: 82 Year
  Sex: Male

DRUGS (14)
  1. TOCILIZUMAB [Suspect]
     Indication: RHEUMATOID ARTHRITIS
     Route: 042
     Dates: start: 20111101, end: 20120930
  2. ALENDRONATE [Concomitant]
  3. ASPIRIN [Concomitant]
  4. BISOPROLOL [Concomitant]
  5. BUMETANIDE [Concomitant]
  6. CALCICHEW D3 [Concomitant]
  7. CITALOPRAM [Concomitant]
  8. HYDROXYCHLOROQUINE [Concomitant]
  9. METHOTREXATE [Concomitant]
  10. NICORANDIL [Concomitant]
  11. PREDNISOLONE [Concomitant]
  12. RAMIPRIL [Concomitant]
  13. SIMVASTATIN [Concomitant]
  14. SULFASALAZINE [Concomitant]

REACTIONS (2)
  - Metastatic neoplasm [Fatal]
  - Metastases to liver [Unknown]
